FAERS Safety Report 4846226-4 (Version None)
Quarter: 2005Q4

REPORT INFORMATION
  Report Type: 
  Country: None (occurrence: None)
  Receive Date: 20051115
  Receipt Date: 20050822
  Transmission Date: 20060501
  Serious: Yes (Hospitalization)
  Sender: FDA-Public Use
  Company Number: 415154

PATIENT
  Age: 35 Year
  Sex: Female
  Weight: 76.2 kg

DRUGS (7)
  1. PEGASYS [Suspect]
     Indication: HEPATITIS C
     Dosage: SUBCUTANEOUS
     Route: 058
     Dates: start: 20030715, end: 20030815
  2. COPEGUS [Suspect]
     Indication: HEPATITIS C
     Dosage: ORAL
     Route: 048
     Dates: start: 20030715, end: 20030715
  3. CELEXA [Concomitant]
  4. TYLENOL ARTHRITIS (PARACETAMOL) [Concomitant]
  5. AMITRIPTYLINE HCL [Concomitant]
  6. AMBIEN [Concomitant]
  7. CAMPRAL [Concomitant]

REACTIONS (1)
  - SUICIDE ATTEMPT [None]
